FAERS Safety Report 8407748-2 (Version None)
Quarter: 2012Q2

REPORT INFORMATION
  Report Type: 
  Country: None (occurrence: None)
  Receive Date: 20120604
  Receipt Date: 20120525
  Transmission Date: 20120825
  Serious: Yes (Hospitalization)
  Sender: FDA-Public Use
  Company Number: US-GLAXOSMITHKLINE-A0979114A

PATIENT
  Sex: Female

DRUGS (2)
  1. UNSPECIFIED MEDICATION [Concomitant]
  2. LAMICTAL [Suspect]
     Indication: PRODUCT USED FOR UNKNOWN INDICATION
     Route: 048
     Dates: start: 20060101

REACTIONS (12)
  - VISION BLURRED [None]
  - CONVULSION [None]
  - COORDINATION ABNORMAL [None]
  - THYROID DISORDER [None]
  - UNEVALUABLE EVENT [None]
  - DIZZINESS [None]
  - MOOD ALTERED [None]
  - GALACTORRHOEA [None]
  - ABASIA [None]
  - HORMONE LEVEL ABNORMAL [None]
  - ADVERSE DRUG REACTION [None]
  - PREMENSTRUAL SYNDROME [None]
